FAERS Safety Report 5837487-3 (Version None)
Quarter: 2008Q3

REPORT INFORMATION
  Report Type: 
  Country: None (occurrence: None)
  Receive Date: 20080807
  Receipt Date: 20080731
  Transmission Date: 20090109
  Serious: Yes (Other)
  Sender: FDA-Public Use
  Company Number: AU-BOEHRINGER INGELHEIM GMBH, GERMANY-2008-BP-12099AU

PATIENT
  Sex: Female

DRUGS (1)
  1. MOBIC [Suspect]
     Indication: PAIN
     Route: 048
     Dates: start: 20080408, end: 20080408

REACTIONS (3)
  - ERYTHEMA [None]
  - FACE OEDEMA [None]
  - THROAT TIGHTNESS [None]
